FAERS Safety Report 8463819-6 (Version None)
Quarter: 2012Q2

REPORT INFORMATION
  Report Type: 
  Country: None (occurrence: None)
  Receive Date: 20120625
  Receipt Date: 20110511
  Transmission Date: 20120825
  Serious: No
  Sender: FDA-Public Use
  Company Number: US-BRISTOL-MYERS SQUIBB COMPANY-15739824

PATIENT
  Age: 58 Year
  Sex: Female

DRUGS (1)
  1. MONOPRIL [Suspect]

REACTIONS (1)
  - COUGH [None]
